FAERS Safety Report 17547249 (Version 1)
Quarter: 2020Q1

REPORT INFORMATION
  Report Type: Spontaneous
  Country: CA (occurrence: CA)
  Receive Date: 20200316
  Receipt Date: 20200316
  Transmission Date: 20200409
  Serious: Yes (Other)
  Sender: FDA-Public Use
  Company Number: NVSC2020CA072095

PATIENT
  Age: 26 Year
  Sex: Female

DRUGS (18)
  1. CYCLOPHOSPHAMIDE. [Suspect]
     Active Substance: CYCLOPHOSPHAMIDE
     Indication: PHAEOCHROMOCYTOMA
     Route: 065
  2. CYCLOPHOSPHAMIDE. [Suspect]
     Active Substance: CYCLOPHOSPHAMIDE
     Indication: PARAGANGLION NEOPLASM MALIGNANT
  3. TEMOZOLOMIDE. [Suspect]
     Active Substance: TEMOZOLOMIDE
     Indication: PHAEOCHROMOCYTOMA
     Route: 065
  4. TEMOZOLOMIDE. [Suspect]
     Active Substance: TEMOZOLOMIDE
     Indication: PARAGANGLION NEOPLASM MALIGNANT
  5. UROMITEXAN [Suspect]
     Active Substance: MESNA
     Indication: PHAEOCHROMOCYTOMA
     Route: 065
  6. SUNITINIB MALATE. [Suspect]
     Active Substance: SUNITINIB MALATE
     Indication: PHAEOCHROMOCYTOMA
     Route: 065
  7. PROCYTOX [Suspect]
     Active Substance: CYCLOPHOSPHAMIDE
     Indication: PARAGANGLION NEOPLASM MALIGNANT
  8. AFINITOR [Suspect]
     Active Substance: EVEROLIMUS
     Indication: PHAEOCHROMOCYTOMA
     Route: 065
  9. VANDETANIB. [Suspect]
     Active Substance: VANDETANIB
     Indication: PARAGANGLION NEOPLASM MALIGNANT
  10. TOPOTECAN HYDROCHLORIDE. [Suspect]
     Active Substance: TOPOTECAN HYDROCHLORIDE
     Indication: PHAEOCHROMOCYTOMA
     Route: 065
  11. TOPOTECAN HYDROCHLORIDE. [Suspect]
     Active Substance: TOPOTECAN HYDROCHLORIDE
     Indication: PARAGANGLION NEOPLASM MALIGNANT
  12. MESNA. [Suspect]
     Active Substance: MESNA
     Indication: PARAGANGLION NEOPLASM MALIGNANT
  13. AFINITOR [Suspect]
     Active Substance: EVEROLIMUS
     Indication: PARAGANGLION NEOPLASM MALIGNANT
  14. UROMITEXAN [Suspect]
     Active Substance: MESNA
     Indication: PARAGANGLION NEOPLASM MALIGNANT
  15. MESNA. [Suspect]
     Active Substance: MESNA
     Indication: PHAEOCHROMOCYTOMA
     Route: 065
  16. SUNITINIB MALATE. [Suspect]
     Active Substance: SUNITINIB MALATE
     Indication: PARAGANGLION NEOPLASM MALIGNANT
  17. VANDETANIB. [Suspect]
     Active Substance: VANDETANIB
     Indication: PHAEOCHROMOCYTOMA
     Route: 065
  18. PROCYTOX [Suspect]
     Active Substance: CYCLOPHOSPHAMIDE
     Indication: PHAEOCHROMOCYTOMA
     Route: 065

REACTIONS (6)
  - Metastases to bone [Unknown]
  - Headache [Unknown]
  - Insomnia [Unknown]
  - Metastases to central nervous system [Unknown]
  - Pancytopenia [Unknown]
  - Metastases to liver [Unknown]
